FAERS Safety Report 9777703 (Version 2)
Quarter: 2013Q4

REPORT INFORMATION
  Report Type: Spontaneous
  Country: PH (occurrence: PH)
  Receive Date: 20131223
  Receipt Date: 20131223
  Transmission Date: 20140711
  Serious: No
  Sender: FDA-Public Use
  Company Number: PH-B.I. PHARMACEUTICALS,INC./RIDGEFIELD-2013-BI-32788RP

PATIENT
  Sex: Female

DRUGS (2)
  1. MICARDIS PLUS [Suspect]
     Indication: HYPERTENSION
     Dosage: DOSE PER APPLICATION: 40/12.5 DAILY DOSE: 40/12.5
  2. MICARDIS PLUS [Suspect]
     Dosage: 40 MG

REACTIONS (1)
  - Arthralgia [Not Recovered/Not Resolved]
